FAERS Safety Report 23674727 (Version 1)
Quarter: 2024Q1

REPORT INFORMATION
  Report Type: Report from Study
  Country: IT (occurrence: IT)
  Receive Date: 20240326
  Receipt Date: 20240326
  Transmission Date: 20240410
  Serious: Yes (Hospitalization, Other)
  Sender: FDA-Public Use
  Company Number: None

PATIENT
  Age: 7 Year
  Sex: Male
  Weight: 27 kg

DRUGS (11)
  1. TOPOTECAN HYDROCHLORIDE [Suspect]
     Active Substance: TOPOTECAN HYDROCHLORIDE
     Indication: Neuroblastoma recurrent
     Dosage: 0.66 MG, DAILY
     Route: 042
     Dates: start: 20230131, end: 20240204
  2. TOPOTECAN HYDROCHLORIDE [Suspect]
     Active Substance: TOPOTECAN HYDROCHLORIDE
     Dosage: 0.66 MG, DAILY
     Route: 042
     Dates: start: 20240226, end: 20240301
  3. DINUTUXIMAB BETA [Suspect]
     Active Substance: DINUTUXIMAB BETA
     Indication: Neuroblastoma recurrent
     Dosage: 40 MG CONTINUOUS INFUSION
     Route: 042
     Dates: start: 20240202, end: 20240206
  4. DINUTUXIMAB BETA [Suspect]
     Active Substance: DINUTUXIMAB BETA
     Dosage: 40 MG CONTINUOUS INFUSION
     Route: 042
     Dates: start: 20240227, end: 20240302
  5. CYCLOPHOSPHAMIDE [Suspect]
     Active Substance: CYCLOPHOSPHAMIDE
     Indication: Neuroblastoma recurrent
     Dosage: 220 MG, DAILY
     Route: 042
     Dates: start: 20230131, end: 20240204
  6. CYCLOPHOSPHAMIDE [Suspect]
     Active Substance: CYCLOPHOSPHAMIDE
     Dosage: 220 MG, DAILY
     Route: 042
     Dates: start: 20240226, end: 20240301
  7. LORLATINIB [Concomitant]
     Active Substance: LORLATINIB
     Indication: Neuroblastoma recurrent
     Dosage: 100 MG, DAILY
     Route: 048
     Dates: start: 20240114
  8. PANTOPRAZOLO SUN [Concomitant]
     Dosage: 20 MG, DAILY
     Route: 042
     Dates: start: 20240201, end: 20240206
  9. MORFINA MONICO [Concomitant]
     Dosage: 10 MG IN 48 ML DI FISIOL.2 ML/H.
     Route: 042
     Dates: start: 20240202, end: 20240206
  10. ONDANSETRON HYDROCHLORIDE [Concomitant]
     Active Substance: ONDANSETRON HYDROCHLORIDE
     Dosage: 8 MG, DAILY
     Route: 042
     Dates: start: 20240131, end: 20240205
  11. PARACETAMOLO B. BRAUN [Concomitant]
     Dosage: 350 MG, DAILY
     Route: 042
     Dates: start: 20240131, end: 20240206

REACTIONS (5)
  - Febrile neutropenia [Recovering/Resolving]
  - Pancytopenia [Not Recovered/Not Resolved]
  - Anaemia [Recovering/Resolving]
  - Diarrhoea [Recovered/Resolved]
  - Off label use [Unknown]

NARRATIVE: CASE EVENT DATE: 20230131
